FAERS Safety Report 16358354 (Version 1)
Quarter: 2019Q2

REPORT INFORMATION
  Report Type: Report from Study
  Country: AU (occurrence: AU)
  Receive Date: 20190527
  Receipt Date: 20190527
  Transmission Date: 20190711
  Serious: Yes (Other)
  Sender: FDA-Public Use
  Company Number: AU-PFIZER INC-2019217327

PATIENT
  Age: 4 Year
  Sex: Male

DRUGS (1)
  1. PROPOFOL. [Suspect]
     Active Substance: PROPOFOL
     Indication: INDUCTION OF ANAESTHESIA
     Dosage: 20 MG, UNK

REACTIONS (4)
  - Circumoral oedema [Recovering/Resolving]
  - Periorbital swelling [Recovering/Resolving]
  - Sepsis [Recovering/Resolving]
  - Tachycardia [Recovering/Resolving]
